FAERS Safety Report 6253067-2 (Version None)
Quarter: 2009Q3

REPORT INFORMATION
  Report Type: 
  Country: None (occurrence: None)
  Receive Date: 20090701
  Receipt Date: 20090618
  Transmission Date: 20100115
  Serious: Yes (Hospitalization)
  Sender: FDA-Public Use
  Company Number: PHHY2009GB02215

PATIENT
  Sex: Male

DRUGS (9)
  1. CLOZARIL [Suspect]
     Indication: SCHIZOPHRENIA
     Dosage: UNK
     Dates: start: 20030714
  2. CLOZARIL [Suspect]
     Dosage: 8.4 GM
     Dates: start: 20090113
  3. CLOZARIL [Suspect]
     Dosage: 600 MG, UNK
     Route: 048
     Dates: start: 20090115, end: 20090129
  4. VALPROATE SODIUM [Suspect]
     Indication: SCHIZOPHRENIA
     Dosage: 1 G
     Route: 048
     Dates: start: 20090115, end: 20090129
  5. CITALOPRAM HYDROBROMIDE [Suspect]
     Indication: SCHIZOPHRENIA
     Dosage: 20 MG, UNK
     Route: 048
  6. DIAZEPAM [Suspect]
  7. SIMVASTATIN [Concomitant]
     Indication: HYPERCHOLESTEROLAEMIA
     Dosage: 40 MG, UNK
     Route: 048
     Dates: start: 20090115, end: 20090129
  8. METFORMIN [Concomitant]
     Indication: TYPE 2 DIABETES MELLITUS
     Dosage: 1 G, UNK
     Route: 048
     Dates: start: 20090115, end: 20090129
  9. ASPIRIN [Concomitant]
     Indication: HYPERCHOLESTEROLAEMIA
     Dosage: 75 MG, UNK
     Route: 048

REACTIONS (4)
  - CONFUSIONAL STATE [None]
  - CSF TEST ABNORMAL [None]
  - CSF WHITE BLOOD CELL COUNT POSITIVE [None]
  - OVERDOSE [None]
